FAERS Safety Report 17757939 (Version 1)
Quarter: 2020Q2

REPORT INFORMATION
  Report Type: Report from Study
  Country: US (occurrence: US)
  Receive Date: 20200507
  Receipt Date: 20200507
  Transmission Date: 20200714
  Serious: Yes (Death)
  Sender: FDA-Public Use
  Company Number: US-ACTELION-A-US2019-194518

PATIENT
  Age: 63 Year
  Sex: Male
  Weight: 70.3 kg

DRUGS (6)
  1. UPTRAVI [Suspect]
     Active Substance: SELEXIPAG
     Dosage: 1600 MCG, BID
     Route: 048
  2. TADALAFIL. [Concomitant]
     Active Substance: TADALAFIL
  3. AMLODIPINE [Concomitant]
     Active Substance: AMLODIPINE BESYLATE
  4. ELIQUIS [Concomitant]
     Active Substance: APIXABAN
  5. UPTRAVI [Suspect]
     Active Substance: SELEXIPAG
     Indication: PULMONARY ARTERIAL HYPERTENSION
     Dosage: 400 MCG, BID
     Route: 048
  6. UPTRAVI [Suspect]
     Active Substance: SELEXIPAG
     Dosage: 1200 UNK
     Route: 048

REACTIONS (15)
  - Myalgia [Unknown]
  - Dizziness [Unknown]
  - Fluid retention [Unknown]
  - Swelling [Unknown]
  - Headache [Unknown]
  - Death [Fatal]
  - Pollakiuria [Unknown]
  - Arthralgia [Unknown]
  - Peripheral swelling [Unknown]
  - Diarrhoea [Unknown]
  - Gastric disorder [Unknown]
  - Haemorrhage [Unknown]
  - Dyspnoea [Unknown]
  - Fear of disease [Unknown]
  - Presyncope [Unknown]

NARRATIVE: CASE EVENT DATE: 20200330
